APPROVED DRUG PRODUCT: CYCLOBENZAPRINE HYDROCHLORIDE
Active Ingredient: CYCLOBENZAPRINE HYDROCHLORIDE
Strength: 10MG
Dosage Form/Route: TABLET;ORAL
Application: A073541 | Product #001 | TE Code: AB
Applicant: TP ANDA HOLDINGS LLC
Approved: May 23, 1995 | RLD: No | RS: No | Type: RX